FAERS Safety Report 5133389-9 (Version None)
Quarter: 2006Q4

REPORT INFORMATION
  Report Type: 
  Country: None (occurrence: None)
  Receive Date: 20061020
  Receipt Date: 20061020
  Transmission Date: 20070319
  Serious: Yes (Hospitalization, Other)
  Sender: FDA-Public Use
  Company Number: None

PATIENT
  Sex: Female
  Weight: 60.5 kg

DRUGS (5)
  1. SULFAMETHOXAZOLE + TRIMETHOPRIM [Suspect]
     Indication: SINUSITIS
     Dosage: 1 TABLET TWICE DAILY ORAL
     Route: 048
     Dates: start: 20060616, end: 20060622
  2. QUINAPRIL [Concomitant]
  3. LEVOTHROID [Concomitant]
  4. TETRA-MAG [Concomitant]
  5. ASACOL [Concomitant]

REACTIONS (1)
  - MUSCULOSKELETAL PAIN [None]
